FAERS Safety Report 7195610-5 (Version None)
Quarter: 2010Q4

REPORT INFORMATION
  Report Type: 
  Country: None (occurrence: None)
  Receive Date: 20101223
  Receipt Date: 20101221
  Transmission Date: 20110411
  Serious: Yes (Hospitalization)
  Sender: FDA-Public Use
  Company Number: US-MERCK-1012USA02982

PATIENT
  Age: 82 Year
  Sex: Male

DRUGS (3)
  1. IVEMEND [Suspect]
     Indication: PROPHYLAXIS
     Route: 041
     Dates: start: 20101112
  2. IVEMEND [Suspect]
     Route: 041
     Dates: start: 20101101
  3. ALOXI [Suspect]
     Route: 042
     Dates: start: 20101112

REACTIONS (1)
  - CARDIAC ARREST [None]
